FAERS Safety Report 9844716 (Version 2)
Quarter: 2015Q1

REPORT INFORMATION
  Report Type: Spontaneous
  Country: CN (occurrence: None)
  Receive Date: 20140122
  Receipt Date: 20150331
  Transmission Date: 20150721
  Serious: Yes (Other)
  Sender: FDA-Public Use
  Company Number: 7261428

PATIENT
  Age: 2 Day
  Sex: Female

DRUGS (1)
  1. EUTHYROX [Suspect]
     Active Substance: LEVOTHYROXINE SODIUM
     Indication: HYPOTHYROIDISM
     Dosage: PRODUCT TAKEN BY MOTHER
     Route: 064
     Dates: start: 2011

REACTIONS (3)
  - Exposure during breast feeding [None]
  - Congenital hypothyroidism [None]
  - Maternal drugs affecting foetus [None]

NARRATIVE: CASE EVENT DATE: 20131216
